FAERS Safety Report 16115589 (Version 3)
Quarter: 2019Q4

REPORT INFORMATION
  Report Type: Report from Study
  Country: US (occurrence: US)
  Receive Date: 20190325
  Receipt Date: 20191004
  Transmission Date: 20200122
  Serious: No
  Sender: FDA-Public Use
  Company Number: US-THERATECHNOLOGIES, INC.-TH-2019-00039

PATIENT

DRUGS (9)
  1. MYTESI [Concomitant]
     Active Substance: CROFELEMER
     Dosage: UNK
  2. DESCOVY [Concomitant]
     Active Substance: EMTRICITABINE\TENOFOVIR ALAFENAMIDE FUMARATE
     Dosage: UNK
  3. TIVICAY [Concomitant]
     Active Substance: DOLUTEGRAVIR SODIUM
     Dosage: UNK
  4. GABAPENTIN. [Concomitant]
     Active Substance: GABAPENTIN
     Dosage: UNK
  5. ZOFRAN [Concomitant]
     Active Substance: ONDANSETRON HYDROCHLORIDE
     Dosage: UNK
  6. EGRIFTA [Suspect]
     Active Substance: TESAMORELIN
     Dosage: UNK
     Dates: start: 20190226
  7. XANAX [Concomitant]
     Active Substance: ALPRAZOLAM
     Dosage: UNK
  8. SINGULAIR [Concomitant]
     Active Substance: MONTELUKAST SODIUM
     Dosage: UNK
  9. VASCEPA [Concomitant]
     Active Substance: ICOSAPENT ETHYL
     Dosage: UNK

REACTIONS (9)
  - Myalgia [Not Recovered/Not Resolved]
  - Joint swelling [Recovered/Resolved]
  - Hypoaesthesia [Not Recovered/Not Resolved]
  - Eye swelling [Recovered/Resolved]
  - Hypopnoea [Recovered/Resolved]
  - Back pain [Not Recovered/Not Resolved]
  - Paraesthesia [Not Recovered/Not Resolved]
  - Peripheral swelling [Recovered/Resolved]
  - Arthralgia [Unknown]

NARRATIVE: CASE EVENT DATE: 201903
